FAERS Safety Report 23659469 (Version 1)
Quarter: 2024Q1

REPORT INFORMATION
  Report Type: Spontaneous
  Country: GB (occurrence: SI)
  Receive Date: 20240321
  Receipt Date: 20240321
  Transmission Date: 20240410
  Serious: Yes (Other)
  Sender: FDA-Public Use
  Company Number: SI-ACRAF SpA-2024-033798

PATIENT

DRUGS (2)
  1. LATUDA [Suspect]
     Active Substance: LURASIDONE HYDROCHLORIDE
     Indication: Schizophrenia
     Dosage: TWO MONTHS AND STILL ONGOING
     Route: 048
     Dates: start: 202401, end: 202403
  2. LATUDA [Suspect]
     Active Substance: LURASIDONE HYDROCHLORIDE
     Dosage: TWO MONTHS AND STILL ONGOING
     Route: 048

REACTIONS (3)
  - Weight decreased [Unknown]
  - Breast enlargement [Unknown]
  - Back pain [Unknown]
